FAERS Safety Report 9206831 (Version 1)
Quarter: 2013Q1

REPORT INFORMATION
  Report Type: Spontaneous
  Country: US (occurrence: None)
  Receive Date: 20120718
  Receipt Date: 20120718
  Transmission Date: 20140127
  Serious: Yes (Hospitalization)
  Sender: FDA-Public Use
  Company Number: 2011SP029281

PATIENT
  Age: 49 Year
  Sex: Male

DRUGS (2)
  1. INTEGRILIN [Suspect]
     Indication: CATHETER PLACEMENT
     Dates: start: 20110610
  2. HEPARIN [Suspect]

REACTIONS (1)
  - Thrombocytopenia [None]
